FAERS Safety Report 5162339-4 (Version None)
Quarter: 2006Q4

REPORT INFORMATION
  Report Type: 
  Country: None (occurrence: None)
  Receive Date: 20061130
  Receipt Date: 20061122
  Transmission Date: 20070319
  Serious: Yes (Life-Threatening, Hospitalization)
  Sender: FDA-Public Use
  Company Number: GR-ABBOTT-06P-066-0351476-00

PATIENT
  Age: 31 Year
  Sex: Female

DRUGS (3)
  1. ZECLAREN [Suspect]
     Indication: LARYNGITIS
     Route: 048
     Dates: start: 20061114, end: 20061114
  2. AERIOUS [Suspect]
     Indication: LARYNGITIS
     Route: 048
     Dates: start: 20061114, end: 20061114
  3. SIVAL B [Suspect]
     Indication: LARYNGITIS
     Route: 048
     Dates: start: 20061114, end: 20061114

REACTIONS (3)
  - ASTHENIA [None]
  - HYPOTENSION [None]
  - RASH [None]
